FAERS Safety Report 8218568-6 (Version None)
Quarter: 2012Q1

REPORT INFORMATION
  Report Type: 
  Country: None (occurrence: None)
  Receive Date: 20120306
  Receipt Date: 20110209
  Transmission Date: 20120608
  Serious: Yes (Life-Threatening)
  Sender: FDA-Public Use
  Company Number: US-005902

PATIENT
  Age: 52 Year
  Sex: Male
  Weight: 102 kg

DRUGS (13)
  1. ZEMURON [Concomitant]
  2. LOVAZA (OMEGA-3 MARIENE TRIGLYCERIDES) [Concomitant]
  3. CRESTOR [Concomitant]
  4. PROPOFOL [Concomitant]
  5. ISOVUE-370 [Suspect]
     Indication: ARTERIOGRAM CORONARY
     Dosage: 4ML ONCE  INTRA-ATERIAL
     Route: 013
     Dates: start: 20110129, end: 20110129
  6. ISOVUE-370 [Suspect]
     Indication: CHEST PAIN
     Dosage: 4ML ONCE  INTRA-ATERIAL
     Route: 013
     Dates: start: 20110129, end: 20110129
  7. NITROGLYCERIN [Concomitant]
  8. LOSARTAN POTASSIUM [Concomitant]
  9. SUCCINYLCHOLINE CHLORIDE [Concomitant]
  10. ASPIRIN [Concomitant]
  11. PLAVIX [Concomitant]
  12. CARVEDIOL  (CARVEDIOL ) [Concomitant]
  13. PEPCID [Concomitant]

REACTIONS (1)
  - ANAPHYLACTIC SHOCK [None]
